FAERS Safety Report 4361133-1 (Version None)
Quarter: 2004Q2

REPORT INFORMATION
  Report Type: 
  Country: None (occurrence: None)
  Receive Date: 20040511
  Receipt Date: 20031126
  Transmission Date: 20050107
  Serious: Yes (Death)
  Sender: FDA-Public Use
  Company Number: US_031299188

PATIENT
  Age: 24 Year

DRUGS (2)
  1. FLUOXETINE [Suspect]
  2. CARBAMAZEPINE [Concomitant]

REACTIONS (2)
  - OVERDOSE [None]
  - SUICIDE ATTEMPT [None]
